FAERS Safety Report 4961718-5 (Version None)
Quarter: 2006Q2

REPORT INFORMATION
  Report Type: 
  Country: None (occurrence: None)
  Receive Date: 20060404
  Receipt Date: 20050913
  Transmission Date: 20061013
  Serious: Yes (Death, Other)
  Sender: FDA-Public Use
  Company Number: PHBS2005JP13499

PATIENT
  Age: 21 Year
  Sex: Male
  Weight: 40 kg

DRUGS (7)
  1. NEORAL [Suspect]
     Indication: STEM CELL TRANSPLANT
     Dosage: 100 MG/D
     Route: 048
     Dates: start: 20050429, end: 20050519
  2. SANDIMMUNE [Suspect]
     Indication: STEM CELL TRANSPLANT
     Dosage: 120 MG/D
     Route: 042
     Dates: start: 20050316, end: 20050329
  3. SANDIMMUNE [Suspect]
     Dosage: 70 MG/D
     Route: 042
     Dates: start: 20050330, end: 20050428
  4. FLUDARABINE [Concomitant]
  5. THIOTEPA [Concomitant]
  6. ATGAM [Concomitant]
  7. IRRADIATION [Concomitant]

REACTIONS (4)
  - CSF LYMPHOCYTE COUNT ABNORMAL [None]
  - DEPRESSED LEVEL OF CONSCIOUSNESS [None]
  - ENCEPHALITIS [None]
  - RENAL IMPAIRMENT [None]
